FAERS Safety Report 18741815 (Version 1)
Quarter: 2021Q1

REPORT INFORMATION
  Report Type: Spontaneous
  Country: FR (occurrence: FR)
  Receive Date: 20210114
  Receipt Date: 20210114
  Transmission Date: 20210419
  Serious: Yes (Death)
  Sender: FDA-Public Use
  Company Number: FR-BAUSCH-BL-2021-000232

PATIENT
  Age: 59 Year
  Sex: Female

DRUGS (3)
  1. OXAZEPAM. [Suspect]
     Active Substance: OXAZEPAM
     Indication: INTENTIONAL PRODUCT MISUSE
     Dosage: NOT ACCURATE
     Route: 065
     Dates: end: 2019
  2. VENLAFAXINE [Suspect]
     Active Substance: VENLAFAXINE HYDROCHLORIDE
     Indication: INTENTIONAL PRODUCT MISUSE
     Dosage: NOT ACCURATE
     Route: 065
     Dates: end: 2019
  3. MORPHINE [Suspect]
     Active Substance: MORPHINE
     Indication: INTENTIONAL PRODUCT MISUSE
     Dosage: NOT ACCURATE
     Route: 065
     Dates: end: 2019

REACTIONS (1)
  - Poisoning deliberate [Fatal]
